FAERS Safety Report 17905484 (Version 1)
Quarter: 2020Q2

REPORT INFORMATION
  Report Type: Spontaneous
  Country: US (occurrence: US)
  Receive Date: 20200616
  Receipt Date: 20200616
  Transmission Date: 20200714
  Serious: Yes (Other)
  Sender: FDA-Public Use
  Company Number: US-ROCHE-2341510

PATIENT
  Sex: Female

DRUGS (2)
  1. ACTEMRA [Suspect]
     Active Substance: TOCILIZUMAB
     Indication: TEMPORAL ARTERITIS
     Dosage: ONGOING: YES
     Route: 058
     Dates: start: 20190206
  2. ACTEMRA [Suspect]
     Active Substance: TOCILIZUMAB
     Indication: RHEUMATOID ARTHRITIS

REACTIONS (8)
  - Paraesthesia [Unknown]
  - Diverticulitis [Unknown]
  - Hypoaesthesia [Unknown]
  - Dizziness [Unknown]
  - Peripheral swelling [Unknown]
  - Depression [Unknown]
  - Irritability [Unknown]
  - Vertigo [Unknown]
